FAERS Safety Report 8124313-5 (Version None)
Quarter: 2012Q1

REPORT INFORMATION
  Report Type: 
  Country: None (occurrence: None)
  Receive Date: 20120209
  Receipt Date: 20120201
  Transmission Date: 20120608
  Serious: Yes (Hospitalization)
  Sender: FDA-Public Use
  Company Number: US-BAYER-2011-047125

PATIENT
  Age: 26 Year
  Sex: Female
  Weight: 104.31 kg

DRUGS (1)
  1. YAZ [Suspect]
     Indication: PREMENSTRUAL SYNDROME
     Dosage: UNK
     Dates: start: 20071101, end: 20080501

REACTIONS (8)
  - ABDOMINAL PAIN UPPER [None]
  - EMOTIONAL DISTRESS [None]
  - PSYCHOLOGICAL TRAUMA [None]
  - CHOLECYSTITIS [None]
  - ANXIETY [None]
  - PAIN [None]
  - GALLBLADDER DISORDER [None]
  - FEAR [None]
